FAERS Safety Report 22846402 (Version 2)
Quarter: 2023Q4

REPORT INFORMATION
  Report Type: Spontaneous
  Country: JP (occurrence: JP)
  Receive Date: 20230822
  Receipt Date: 20231030
  Transmission Date: 20240109
  Serious: Yes (Other)
  Sender: FDA-Public Use
  Company Number: JP-MSD-2308JPN001905J

PATIENT
  Age: 77 Year
  Sex: Male

DRUGS (1)
  1. KEYTRUDA [Suspect]
     Active Substance: PEMBROLIZUMAB
     Indication: Squamous cell carcinoma of lung
     Dosage: 200 MILLIGRAM, Q3W
     Route: 041
     Dates: start: 20190129, end: 20200728

REACTIONS (2)
  - Organising pneumonia [Recovering/Resolving]
  - Thyroid disorder [Recovering/Resolving]

NARRATIVE: CASE EVENT DATE: 20190312
